FAERS Safety Report 23052167 (Version 3)
Quarter: 2023Q4

REPORT INFORMATION
  Report Type: Report from Study
  Country: US (occurrence: US)
  Receive Date: 20231010
  Receipt Date: 20231212
  Transmission Date: 20240109
  Serious: No
  Sender: FDA-Public Use
  Company Number: US-LUNDBECK-DKLU3067540

PATIENT
  Age: 50 Year

DRUGS (1)
  1. VYEPTI [Suspect]
     Active Substance: EPTINEZUMAB-JJMR
     Indication: Migraine
     Route: 041
     Dates: start: 20230901

REACTIONS (5)
  - Nasal congestion [Unknown]
  - Stress [Unknown]
  - Headache [Unknown]
  - Drug effect less than expected [Unknown]
  - Laryngitis [Unknown]
